FAERS Safety Report 7786870-8 (Version None)
Quarter: 2011Q3

REPORT INFORMATION
  Report Type: 
  Country: None (occurrence: None)
  Receive Date: 20110928
  Receipt Date: 20110928
  Transmission Date: 20111222
  Serious: Yes (Other)
  Sender: FDA-Public Use
  Company Number: None

PATIENT
  Age: 22 Year
  Sex: Female
  Weight: 46.8 kg

DRUGS (10)
  1. DACARBAZINE [Concomitant]
  2. DOXORUBICIN HCL [Concomitant]
  3. PRILOSEC [Concomitant]
  4. ACETAMINOPHEN [Concomitant]
  5. AMBIEN [Concomitant]
  6. BLEOMYCIN SULFATE [Concomitant]
  7. VINBLASTINE SULFATE [Concomitant]
  8. EMCA CREAM [Concomitant]
  9. ALEFACEPT [Suspect]
     Indication: IMMUNOSUPPRESSION
     Dosage: 15 MG MONTHLY SQ
     Route: 058
     Dates: start: 20101201, end: 20110719
  10. XANAX [Concomitant]

REACTIONS (2)
  - CHILLS [None]
  - HYPERPYREXIA [None]
